FAERS Safety Report 5305610-5 (Version None)
Quarter: 2007Q2

REPORT INFORMATION
  Report Type: 
  Country: None (occurrence: None)
  Receive Date: 20070416
  Receipt Date: 20070403
  Transmission Date: 20071010
  Serious: Yes (Hospitalization, Other)
  Sender: FDA-Public Use
  Company Number: GXKR2007JP03155

PATIENT
  Age: 74 Year
  Sex: Female

DRUGS (5)
  1. CILOSTAZOL [Suspect]
     Indication: THROMBOSIS PROPHYLAXIS
     Dosage: 200 MG, QD
  2. ASPIRIN [Concomitant]
  3. TICLOPIDINE (TICLOPIDINE) [Concomitant]
  4. ISOSORBIDE DINITRATE [Concomitant]
  5. CANDESARTAN CILEXETIL (CANDESARTAN CILEXETIL) [Concomitant]

REACTIONS (5)
  - CARDIAC DISORDER [None]
  - CARDIAC MURMUR [None]
  - EJECTION FRACTION DECREASED [None]
  - HEART RATE INCREASED [None]
  - HYPOKINESIA [None]
